FAERS Safety Report 13478867 (Version 1)
Quarter: 2017Q2

REPORT INFORMATION
  Report Type: Spontaneous
  Country: US (occurrence: US)
  Receive Date: 20170425
  Receipt Date: 20170425
  Transmission Date: 20170830
  Serious: No
  Sender: FDA-Public Use
  Company Number: US-TEVA-755821ACC

PATIENT
  Age: 27 Year

DRUGS (1)
  1. PARAGARD T 380A [Suspect]
     Active Substance: COPPER
     Indication: CONTRACEPTION
     Dosage: TWO YEARS AGO
     Route: 065

REACTIONS (3)
  - Weight loss poor [Not Recovered/Not Resolved]
  - Polycystic ovaries [Not Recovered/Not Resolved]
  - Rash [Not Recovered/Not Resolved]
